FAERS Safety Report 5136320-5 (Version None)
Quarter: 2006Q4

REPORT INFORMATION
  Report Type: 
  Country: None (occurrence: None)
  Receive Date: 20061027
  Receipt Date: 20061025
  Transmission Date: 20070319
  Serious: Yes (Hospitalization)
  Sender: FDA-Public Use
  Company Number: FR-GLAXOSMITHKLINE-B0443869A

PATIENT
  Age: 28 Year
  Sex: Female

DRUGS (1)
  1. CLAMOXYL [Suspect]
     Indication: INFLUENZA LIKE ILLNESS
     Route: 048
     Dates: start: 20060318, end: 20060319

REACTIONS (3)
  - DRUG EXPOSURE DURING PREGNANCY [None]
  - PRURIGO [None]
  - RASH [None]
